FAERS Safety Report 7760638-0 (Version None)
Quarter: 2011Q3

REPORT INFORMATION
  Report Type: 
  Country: None (occurrence: None)
  Receive Date: 20110919
  Receipt Date: 20110913
  Transmission Date: 20111222
  Serious: Yes (Other)
  Sender: FDA-Public Use
  Company Number: US-PFIZER INC-2011216877

PATIENT
  Sex: Male

DRUGS (9)
  1. ASPIRIN [Concomitant]
  2. AVODART [Concomitant]
  3. ZETIA [Concomitant]
  4. PROPRANOLOL HCL [Suspect]
     Dosage: 160 MG DAILY
     Dates: start: 20110101, end: 20110903
  5. PROPRANOLOL HCL [Suspect]
     Indication: ATRIAL FIBRILLATION
     Dosage: 120 MG, UNK
     Dates: start: 20090101, end: 20110101
  6. PROPRANOLOL HCL [Suspect]
     Dosage: UNK
     Dates: start: 20110907, end: 20110909
  7. PROPRANOLOL HCL [Suspect]
     Dosage: 160 MG , UNK
     Dates: start: 20110904, end: 20110906
  8. PROPRANOLOL HCL [Suspect]
     Dosage: 120 MG, UNK
     Dates: start: 20110910
  9. CRESTOR [Concomitant]

REACTIONS (2)
  - DRUG INEFFECTIVE [None]
  - ATRIAL FIBRILLATION [None]
